FAERS Safety Report 13156046 (Version 1)
Quarter: 2017Q1

REPORT INFORMATION
  Report Type: Spontaneous
  Country: US (occurrence: US)
  Receive Date: 20170126
  Receipt Date: 20170126
  Transmission Date: 20170428
  Serious: No
  Sender: FDA-Public Use
  Company Number: US-ROCHE-1438387

PATIENT
  Sex: Male

DRUGS (2)
  1. DIAZEPAM. [Suspect]
     Active Substance: DIAZEPAM
     Indication: QUADRIPLEGIA
     Route: 065
  2. VALIUM [Suspect]
     Active Substance: DIAZEPAM
     Indication: QUADRIPLEGIA
     Route: 065
     Dates: start: 198112

REACTIONS (7)
  - Cold sweat [Unknown]
  - Screaming [Unknown]
  - Feeling abnormal [Unknown]
  - Hyperhidrosis [Unknown]
  - Withdrawal syndrome [Unknown]
  - Muscle spasms [Unknown]
  - Gastrointestinal disorder [Unknown]
